FAERS Safety Report 15225606 (Version 5)
Quarter: 2020Q3

REPORT INFORMATION
  Report Type: Other
  Country: US (occurrence: US)
  Receive Date: 20180801
  Receipt Date: 20200930
  Transmission Date: 20201102
  Serious: Yes (Hospitalization, Other)
  Sender: FDA-Public Use
  Company Number: US-ROCHE-2161029

PATIENT
  Age: 43 Year
  Sex: Male
  Weight: 61.29 kg

DRUGS (9)
  1. ADDERALL [Concomitant]
     Active Substance: AMPHETAMINE ASPARTATE\AMPHETAMINE SULFATE\DEXTROAMPHETAMINE SACCHARATE\DEXTROAMPHETAMINE SULFATE
     Route: 048
  2. OXYCODONE [Concomitant]
     Active Substance: OXYCODONE
     Indication: PAIN
  3. OXYCODONE [Concomitant]
     Active Substance: OXYCODONE
     Indication: BLADDER SPASM
  4. OXYBUTYNIN. [Concomitant]
     Active Substance: OXYBUTYNIN CHLORIDE
  5. FLEXERIL [Concomitant]
     Active Substance: CYCLOBENZAPRINE HYDROCHLORIDE
  6. RISPERDAL [Concomitant]
     Active Substance: RISPERIDONE
     Route: 048
  7. OCREVUS [Suspect]
     Active Substance: OCRELIZUMAB
     Indication: RELAPSING MULTIPLE SCLEROSIS
     Dosage: INFUSE 300MG DAY 1; THEN 300MG DAY 15
     Route: 042
     Dates: start: 201804
  8. OCREVUS [Suspect]
     Active Substance: OCRELIZUMAB
     Indication: MULTIPLE SCLEROSIS
     Route: 042
     Dates: start: 2017
  9. OCREVUS [Suspect]
     Active Substance: OCRELIZUMAB
     Route: 042
     Dates: start: 2018

REACTIONS (5)
  - Urinary tract infection [Not Recovered/Not Resolved]
  - Multiple sclerosis relapse [Not Recovered/Not Resolved]
  - Cystitis [Recovered/Resolved]
  - Urinary tract infection [Unknown]
  - Pain in extremity [Unknown]

NARRATIVE: CASE EVENT DATE: 202007
